FAERS Safety Report 7544375-3 (Version None)
Quarter: 2011Q2

REPORT INFORMATION
  Report Type: 
  Country: None (occurrence: None)
  Receive Date: 20110613
  Receipt Date: 20080818
  Transmission Date: 20111010
  Serious: Yes (Hospitalization)
  Sender: FDA-Public Use
  Company Number: PHHO2008DE10189

PATIENT
  Sex: Female
  Weight: 57.6 kg

DRUGS (3)
  1. VITAMIN D [Concomitant]
  2. CALCIUM CARBONATE [Concomitant]
  3. ZOLEDRONIC ACID [Suspect]
     Indication: BREAST CANCER
     Dosage: 4 MG, UNK
     Route: 042
     Dates: start: 20070208

REACTIONS (1)
  - HYPERTENSIVE CRISIS [None]
